FAERS Safety Report 23348950 (Version 8)
Quarter: 2024Q2

REPORT INFORMATION
  Report Type: Spontaneous
  Country: US (occurrence: US)
  Receive Date: 20231229
  Receipt Date: 20240531
  Transmission Date: 20240716
  Serious: No
  Sender: FDA-Public Use
  Company Number: US-SA-SAC20231220001533

PATIENT
  Age: 10 Year
  Sex: Male

DRUGS (1)
  1. NEXVIAZYME [Suspect]
     Active Substance: AVALGLUCOSIDASE ALFA-NGPT
     Dosage: UNK
     Route: 065

REACTIONS (2)
  - Drug specific antibody present [Recovering/Resolving]
  - Neutralising antibodies positive [Unknown]

NARRATIVE: CASE EVENT DATE: 20231130
